FAERS Safety Report 10354330 (Version 1)
Quarter: 2014Q3

REPORT INFORMATION
  Report Type: Spontaneous
  Country: GB (occurrence: None)
  Receive Date: 20140729
  Receipt Date: 20140729
  Transmission Date: 20150326
  Serious: Yes (Other)
  Sender: FDA-Public Use
  Company Number: AUR-APL-2014-07946

PATIENT
  Age: 35 Year
  Sex: Male
  Weight: 84 kg

DRUGS (4)
  1. ARCOXIA (ETORICOXIB) [Concomitant]
  2. CITALOPRAM [Suspect]
     Active Substance: CITALOPRAM HYDROBROMIDE
     Indication: DEPRESSED MOOD
     Route: 048
     Dates: start: 20140420, end: 20140710
  3. AMITRIPTYLINE (AMITRIPTYLINE) [Concomitant]
     Active Substance: AMITRIPTYLINE
  4. TRAMADOL (TRAMADOL) [Concomitant]
     Active Substance: TRAMADOL

REACTIONS (1)
  - Nightmare [None]

NARRATIVE: CASE EVENT DATE: 20140629
